FAERS Safety Report 6962304-8 (Version None)
Quarter: 2010Q3

REPORT INFORMATION
  Report Type: 
  Country: None (occurrence: None)
  Receive Date: 20100823
  Receipt Date: 20100615
  Transmission Date: 20110219
  Serious: No
  Sender: FDA-Public Use
  Company Number: 013820

PATIENT
  Sex: Female

DRUGS (6)
  1. CIMZIA [Suspect]
     Indication: CROHN'S DISEASE
     Dosage: SUBCUTANEOUS
     Route: 058
     Dates: start: 20100218
  2. SEROQUEL [Concomitant]
  3. PAXIL [Concomitant]
  4. RESTORIL [Concomitant]
  5. REMERON [Concomitant]
  6. VISTARIL [Concomitant]

REACTIONS (2)
  - ANXIETY [None]
  - NIGHTMARE [None]
